FAERS Safety Report 4843479-3 (Version None)
Quarter: 2005Q4

REPORT INFORMATION
  Report Type: 
  Country: None (occurrence: None)
  Receive Date: 20051101
  Receipt Date: 20041018
  Transmission Date: 20060501
  Serious: Yes (Hospitalization)
  Sender: FDA-Public Use
  Company Number: DSA_25220_2004

PATIENT
  Age: 40 Year
  Sex: Male

DRUGS (6)
  1. ATIVAN [Suspect]
     Dosage: 42 MG ONCE PO
     Route: 048
     Dates: start: 20040118, end: 20040118
  2. LORTAB [Suspect]
     Dates: start: 20040118, end: 20040118
  3. ZICONOTIDE [Concomitant]
  4. KETAMINE [Concomitant]
  5. FENTANYL CITRATE [Concomitant]
  6. DILAUDID [Concomitant]

REACTIONS (4)
  - AGGRESSION [None]
  - INTENTIONAL DRUG MISUSE [None]
  - SELF INJURIOUS BEHAVIOUR [None]
  - SUICIDE ATTEMPT [None]
